FAERS Safety Report 18782796 (Version 1)
Quarter: 2021Q1

REPORT INFORMATION
  Report Type: Spontaneous
  Country: US (occurrence: US)
  Receive Date: 20210125
  Receipt Date: 20210125
  Transmission Date: 20210419
  Serious: No
  Sender: FDA-Public Use
  Company Number: US-ALLERGAN-2036653US

PATIENT
  Sex: Female

DRUGS (1)
  1. RESTASIS [Suspect]
     Active Substance: CYCLOSPORINE
     Indication: PRODUCT USED FOR UNKNOWN INDICATION
     Dosage: 1/4 OF A VIAL IN THE MORNING AND THEN ANOTHER 1/4 AT NIGHT
     Dates: end: 2019

REACTIONS (2)
  - Multiple use of single-use product [Unknown]
  - Inability to afford medication [Unknown]
